FAERS Safety Report 8551468-0 (Version None)
Quarter: 2012Q3

REPORT INFORMATION
  Report Type: 
  Country: None (occurrence: None)
  Receive Date: 20120730
  Receipt Date: 20120109
  Transmission Date: 20120928
  Serious: No
  Sender: FDA-Public Use
  Company Number: US-ALLERGAN-1200293US

PATIENT
  Sex: Female

DRUGS (3)
  1. EYE MAKEUP [Concomitant]
  2. LATISSE [Suspect]
     Indication: HYPOTRICHOSIS
     Dosage: UNK
     Route: 061
     Dates: start: 20111130
  3. EYE SHADOW [Concomitant]

REACTIONS (1)
  - SKIN HYPERPIGMENTATION [None]
